FAERS Safety Report 19976003 (Version 1)
Quarter: 2021Q4

REPORT INFORMATION
  Report Type: Spontaneous
  Country: US (occurrence: US)
  Receive Date: 20211020
  Receipt Date: 20211020
  Transmission Date: 20220303
  Serious: No
  Sender: FDA-Public Use
  Company Number: US-ALLERGAN-2105108US

PATIENT
  Age: 91 Year
  Sex: Male

DRUGS (6)
  1. LINZESS [Suspect]
     Active Substance: LINACLOTIDE
     Indication: Colonoscopy
     Dosage: 145 ?G, BID (AFTER EATING ON FULL STOMACH)
     Route: 048
  2. LINZESS [Suspect]
     Active Substance: LINACLOTIDE
     Dosage: 145 ?G, BID (BEFORE EATING)
     Route: 048
     Dates: start: 20210129
  3. AMLODIPINE [Concomitant]
     Active Substance: AMLODIPINE BESYLATE
     Indication: Hypertension
     Dosage: 5MG
     Route: 048
  4. METOPROLOL [Concomitant]
     Active Substance: METOPROLOL
     Indication: Hypertension
     Route: 048
  5. LISINOPRIL [Concomitant]
     Active Substance: LISINOPRIL
     Indication: Hypertension
     Dosage: 10 MG
     Route: 048
  6. ELIQUIS [Concomitant]
     Active Substance: APIXABAN
     Indication: Heart rate irregular
     Dosage: 5 MG, BID
     Route: 048

REACTIONS (3)
  - Off label use [Unknown]
  - Inappropriate schedule of product administration [Unknown]
  - Drug ineffective [Unknown]

NARRATIVE: CASE EVENT DATE: 20210129
